FAERS Safety Report 20825814 (Version 1)
Quarter: 2022Q2

REPORT INFORMATION
  Report Type: Spontaneous
  Country: US (occurrence: US)
  Receive Date: 20220513
  Receipt Date: 20220513
  Transmission Date: 20220720
  Serious: No
  Sender: FDA-Public Use
  Company Number: US-TEVA-2022-US-2029579

PATIENT
  Sex: Male

DRUGS (2)
  1. PROAIR RESPICLICK [Suspect]
     Active Substance: ALBUTEROL SULFATE
     Route: 065
  2. PROAIR RESPICLICK [Suspect]
     Active Substance: ALBUTEROL SULFATE

REACTIONS (2)
  - Dyspnoea [Unknown]
  - Device delivery system issue [Unknown]
